FAERS Safety Report 7572850-4 (Version None)
Quarter: 2011Q2

REPORT INFORMATION
  Report Type: 
  Country: None (occurrence: None)
  Receive Date: 20110525
  Receipt Date: 20110413
  Transmission Date: 20111010
  Serious: Yes (Hospitalization)
  Sender: FDA-Public Use
  Company Number: 324842

PATIENT
  Age: 78 Year
  Sex: Female
  Weight: 88.4 kg

DRUGS (16)
  1. METOPROLOL TARTRATE [Concomitant]
  2. VITAMIN D [Concomitant]
  3. E VITAMIN E (TOCOPHEROL) [Concomitant]
  4. CALCIUM (CALCIUM) [Concomitant]
  5. VICTOZA [Suspect]
     Indication: TYPE 2 DIABETES MELLITUS
     Dosage: 1.2 MG, QD, SUBCUTANEOUS
     Route: 058
  6. WELLBUTRIN [Concomitant]
  7. AVAPRO [Concomitant]
  8. SIMVASTATIN [Concomitant]
  9. ZYRTEC [Concomitant]
  10. XANAX [Concomitant]
  11. ASPIRIN [Concomitant]
  12. FOLIC ACID [Concomitant]
  13. FERROUS SULFATE TAB [Concomitant]
  14. NEXIUM [Concomitant]
  15. FLUOXETINE [Concomitant]
  16. URSODIOL [Concomitant]

REACTIONS (3)
  - MUSCULOSKELETAL PAIN [None]
  - WEIGHT DECREASED [None]
  - PANCREATITIS [None]
